FAERS Safety Report 18353451 (Version 2)
Quarter: 2021Q4

REPORT INFORMATION
  Report Type: Spontaneous
  Country: US (occurrence: US)
  Receive Date: 20201006
  Receipt Date: 20211020
  Transmission Date: 20220303
  Serious: No
  Sender: FDA-Public Use
  Company Number: US-ALLERGAN-2032583US

PATIENT
  Age: 51 Year
  Sex: Female

DRUGS (2)
  1. LINZESS [Suspect]
     Active Substance: LINACLOTIDE
     Indication: Irritable bowel syndrome
     Dosage: ACTUAL:145 ?G, QAM, ON AN EMPTY STOMACH
     Route: 048
  2. LINZESS [Suspect]
     Active Substance: LINACLOTIDE
     Dosage: ACTUAL:145 ?G, QAM, ON AN EMPTY STOMACH
     Route: 048
     Dates: start: 2020

REACTIONS (2)
  - Off label use [Unknown]
  - Drug ineffective [Unknown]
